FAERS Safety Report 12332950 (Version 1)
Quarter: 2016Q2

REPORT INFORMATION
  Report Type: Report from Study
  Country: JP (occurrence: JP)
  Receive Date: 20160504
  Receipt Date: 20160504
  Transmission Date: 20160815
  Serious: Yes (Other)
  Sender: FDA-Public Use
  Company Number: JP-BRISTOL-MYERS SQUIBB COMPANY-BMS-2016-033526

PATIENT
  Age: 84 Year
  Sex: Female
  Weight: 48 kg

DRUGS (3)
  1. MAINTATE [Concomitant]
     Active Substance: BISOPROLOL FUMARATE
     Indication: SINUS NODE DYSFUNCTION
     Dosage: 1.25 MG, QD
     Route: 048
     Dates: start: 20140225
  2. AMLODIPINE [Concomitant]
     Active Substance: AMLODIPINE BESYLATE
     Indication: HYPERTENSION
     Dosage: 2.5 MG, QD
     Route: 048
  3. APIXABAN [Suspect]
     Active Substance: APIXABAN
     Indication: CEREBROVASCULAR ACCIDENT PROPHYLAXIS
     Dosage: 2.5 MG, BID
     Route: 048
     Dates: start: 20140225

REACTIONS (3)
  - Haemorrhage [Unknown]
  - Occult blood positive [Recovering/Resolving]
  - Diverticulum intestinal [Unknown]

NARRATIVE: CASE EVENT DATE: 20150710
